FAERS Safety Report 7292669-1 (Version None)
Quarter: 2011Q1

REPORT INFORMATION
  Report Type: 
  Country: None (occurrence: None)
  Receive Date: 20110215
  Receipt Date: 20110208
  Transmission Date: 20110831
  Serious: Yes (Other)
  Sender: FDA-Public Use
  Company Number: FR-CELGENEUS-056-21880-11021163

PATIENT
  Age: 73 Year
  Sex: Male
  Weight: 85 kg

DRUGS (4)
  1. REVLIMID [Suspect]
     Indication: MULTIPLE MYELOMA
     Route: 048
     Dates: start: 20091229, end: 20100607
  2. VELCADE [Suspect]
     Indication: MULTIPLE MYELOMA
     Route: 065
     Dates: end: 20100617
  3. ASPIRIN [Concomitant]
     Route: 048
  4. DEXAMETHASONE [Suspect]
     Indication: MULTIPLE MYELOMA
     Route: 048
     Dates: start: 20091229, end: 20100119

REACTIONS (1)
  - RECTAL CANCER [None]
